FAERS Safety Report 16957506 (Version 1)
Quarter: 2019Q4

REPORT INFORMATION
  Report Type: Spontaneous
  Country: GB (occurrence: GB)
  Receive Date: 20191024
  Receipt Date: 20191024
  Transmission Date: 20200122
  Serious: Yes (Hospitalization, Other)
  Sender: FDA-Public Use
  Company Number: GB-TEVA-2009R0706562

PATIENT
  Age: 69 Year
  Sex: Female
  Weight: 105 kg

DRUGS (7)
  1. DIAZEPAM. [Concomitant]
     Active Substance: DIAZEPAM
     Indication: PRODUCT USED FOR UNKNOWN INDICATION
  2. AMILORIDE [Concomitant]
     Active Substance: AMILORIDE
     Indication: PRODUCT USED FOR UNKNOWN INDICATION
  3. ONDANSETRON [Suspect]
     Active Substance: ONDANSETRON
     Indication: ANTIEMETIC SUPPORTIVE CARE
     Dosage: 8 MILLIGRAM DAILY;
     Route: 002
     Dates: start: 20090225, end: 20090225
  4. ORLISTAT. [Concomitant]
     Active Substance: ORLISTAT
     Indication: PRODUCT USED FOR UNKNOWN INDICATION
  5. RAMIPRIL. [Concomitant]
     Active Substance: RAMIPRIL
     Indication: PRODUCT USED FOR UNKNOWN INDICATION
  6. OXYCONTIN [Suspect]
     Active Substance: OXYCODONE HYDROCHLORIDE
     Indication: POSTOPERATIVE ANALGESIA
     Dosage: 20 MILLIGRAM DAILY;
     Route: 002
     Dates: start: 20090225, end: 20090226
  7. PHENELZINE SULPHATE [Concomitant]
     Indication: PRODUCT USED FOR UNKNOWN INDICATION

REACTIONS (5)
  - Agitation [Recovered/Resolved]
  - Somnolence [Recovered/Resolved]
  - Hallucination [Recovered/Resolved]
  - Serotonin syndrome [Recovered/Resolved]
  - Confusional state [Recovered/Resolved]

NARRATIVE: CASE EVENT DATE: 20090226
